FAERS Safety Report 4867895-9 (Version None)
Quarter: 2005Q4

REPORT INFORMATION
  Report Type: 
  Country: None (occurrence: None)
  Receive Date: 20051227
  Receipt Date: 20051215
  Transmission Date: 20060501
  Serious: Yes (Death, Hospitalization)
  Sender: FDA-Public Use
  Company Number: JP-JNJFOC-20050300921

PATIENT
  Age: 77 Year
  Sex: Female
  Weight: 40.5 kg

DRUGS (5)
  1. RISPERDAL [Suspect]
     Indication: SCHIZOPHRENIA
     Dosage: 2 MG, IN 1 DAY, ORAL; 3 MG, IN 1 DAY, ORAL; 2 MG, IN 1 DAY, ORAL
     Route: 048
     Dates: start: 20040926, end: 20041008
  2. RISPERDAL [Suspect]
     Indication: SCHIZOPHRENIA
     Dosage: 2 MG, IN 1 DAY, ORAL; 3 MG, IN 1 DAY, ORAL; 2 MG, IN 1 DAY, ORAL
     Route: 048
     Dates: start: 20041020, end: 20041103
  3. RISPERDAL [Suspect]
     Indication: SCHIZOPHRENIA
     Dosage: 2 MG, IN 1 DAY, ORAL; 3 MG, IN 1 DAY, ORAL; 2 MG, IN 1 DAY, ORAL
     Route: 048
     Dates: start: 20041104, end: 20041215
  4. HALDOL DECANOATE (HALOPERIDOL DECANOATE) INJECTION [Concomitant]
  5. FUROSEMIDE [Concomitant]

REACTIONS (5)
  - ASTHENIA [None]
  - BREAST CANCER RECURRENT [None]
  - DYSPHAGIA [None]
  - LUNG DISORDER [None]
  - PNEUMONIA ASPIRATION [None]
